FAERS Safety Report 21759595 (Version 1)
Quarter: 2022Q4

REPORT INFORMATION
  Report Type: Spontaneous
  Country: CA (occurrence: CA)
  Receive Date: 20221221
  Receipt Date: 20221221
  Transmission Date: 20230113
  Serious: Yes (Other)
  Sender: FDA-Public Use
  Company Number: CA-002147023-NVSC2022CA291088

PATIENT
  Sex: Female

DRUGS (1)
  1. AMLODIPINE MALEATE [Suspect]
     Active Substance: AMLODIPINE MALEATE
     Indication: Product used for unknown indication
     Route: 065

REACTIONS (3)
  - Neurogenic bladder [Unknown]
  - Hypertension [Unknown]
  - Change in sustained attention [Unknown]
